FAERS Safety Report 9319744 (Version 1)
Quarter: 2013Q2

REPORT INFORMATION
  Report Type: Report from Study
  Country: UA (occurrence: UA)
  Receive Date: 20130530
  Receipt Date: 20130530
  Transmission Date: 20140414
  Serious: Yes (Other)
  Sender: FDA-Public Use
  Company Number: UA-TEVA-330480ISR

PATIENT
  Age: 54 Year
  Sex: Male
  Weight: 69.5 kg

DRUGS (22)
  1. TL011 [Suspect]
     Indication: DIFFUSE LARGE B-CELL LYMPHOMA
     Dosage: DOUBLE BLIND: TL011  IV VS. MABTHERA
     Route: 042
     Dates: start: 20120326
  2. MABTHERA [Suspect]
     Indication: DIFFUSE LARGE B-CELL LYMPHOMA
     Dosage: DOUBLE BLIND: TL011 VS. MABTHERA
     Route: 042
     Dates: start: 20120326
  3. DOXORUBICIN [Suspect]
     Indication: CHEMOTHERAPY
     Dosage: 89 MILLIGRAM DAILY;
     Route: 042
     Dates: start: 20120326, end: 20120326
  4. VINCRISTINE [Suspect]
     Indication: CHEMOTHERAPY
     Dosage: 2 MILLIGRAM DAILY;
     Route: 042
     Dates: start: 20120326, end: 20120326
  5. CYCLOPHOSPHAMIDE [Suspect]
     Indication: CHEMOTHERAPY
     Dosage: 1330 MILLIGRAM DAILY;
     Route: 042
     Dates: start: 20120326, end: 20120326
  6. PARACETAMOL [Concomitant]
     Indication: PREMEDICATION
     Dosage: 1 GRAM DAILY;
     Route: 048
     Dates: start: 20120326, end: 20120326
  7. PARACETAMOL [Concomitant]
     Dosage: 1 GRAM DAILY;
     Route: 048
     Dates: start: 20111031, end: 20111031
  8. TOMOVIST [Concomitant]
     Indication: COMPUTERISED TOMOGRAM
     Dosage: 80 ML DAILY;
     Route: 042
     Dates: start: 20120316, end: 20120316
  9. SIBASONUM 0.5% [Concomitant]
     Indication: PREMEDICATION
     Dosage: 2 ML DAILY;
     Route: 030
     Dates: start: 20120226, end: 20120227
  10. OMNOPONUM 2% [Concomitant]
     Indication: ANALGESIC THERAPY
     Route: 030
     Dates: start: 20120227, end: 20120228
  11. DIPHENYDRAMINUM [Concomitant]
     Indication: PREMEDICATION
     Dosage: 1 GRAM DAILY;
     Route: 030
     Dates: start: 20120227, end: 20120227
  12. DIPHENYDRAMINUM [Concomitant]
     Dosage: .01 GRAM DAILY; QG
     Route: 042
     Dates: start: 20120326, end: 20120326
  13. ATROPINUM 0.1% [Concomitant]
     Indication: PREMEDICATION
     Dosage: 1 ML DAILY;
     Route: 030
     Dates: start: 20120227, end: 20120227
  14. FENTANYLUM [Concomitant]
     Indication: ANALGESIC THERAPY
     Dosage: 6 ML DAILY;
     Route: 042
     Dates: start: 20120227, end: 20120227
  15. ARDUAN [Concomitant]
     Indication: ANALGESIC THERAPY
     Dosage: 4 ML DAILY;
     Route: 042
     Dates: start: 20120227, end: 20120227
  16. BELCEF [Concomitant]
     Indication: PROPHYLAXIS
     Dosage: 2 GRAM DAILY;
     Route: 030
     Dates: start: 20120228, end: 20120301
  17. DEXALGINUM [Concomitant]
     Indication: ANALGESIC THERAPY
     Dosage: 4 ML DAILY;
     Route: 030
     Dates: start: 20120228, end: 20120301
  18. OSETRON [Concomitant]
     Indication: PROPHYLAXIS
     Dosage: 8 MILLIGRAM DAILY;
     Route: 042
     Dates: start: 20120326, end: 20120326
  19. FAMOTIDINUM [Concomitant]
     Indication: PROPHYLAXIS
     Dosage: 40 MILLIGRAM DAILY;
     Route: 048
     Dates: start: 20120326
  20. ASPECARD [Concomitant]
     Indication: MYOCARDIAL ISCHAEMIA
     Dosage: 100 MILLIGRAM DAILY;
     Route: 048
     Dates: start: 20120326, end: 20120327
  21. PREDNISOLON [Concomitant]
     Indication: CHEMOTHERAPY
     Dosage: 70 MILLIGRAM DAILY;
     Route: 042
     Dates: start: 20120326, end: 20120326
  22. PREDNISOLON [Concomitant]
     Dosage: 70 MILLIGRAM DAILY;
     Route: 042
     Dates: start: 20120327

REACTIONS (1)
  - Embolism [Recovered/Resolved]
